FAERS Safety Report 4474721-9 (Version None)
Quarter: 2004Q3

REPORT INFORMATION
  Report Type: 
  Country: None (occurrence: None)
  Receive Date: 20040923
  Receipt Date: 20040701
  Transmission Date: 20050211
  Serious: No
  Sender: FDA-Public Use
  Company Number: USA040771578

PATIENT
  Age: 60 Year
  Sex: Female
  Weight: 50 kg

DRUGS (3)
  1. FORTEO [Suspect]
     Indication: OSTEOPOROSIS
     Dosage: 20 UG/1 DAY
     Dates: start: 20040101
  2. VITAMINS NOS [Concomitant]
  3. ACIPHEX [Concomitant]

REACTIONS (5)
  - GASTRIC ULCER [None]
  - HEADACHE [None]
  - MECHANICAL COMPLICATION OF IMPLANT [None]
  - NAUSEA [None]
  - SKIN IRRITATION [None]
